FAERS Safety Report 21942152 (Version 1)
Quarter: 2023Q1

REPORT INFORMATION
  Report Type: Report from Study
  Country: US (occurrence: US)
  Receive Date: 20230202
  Receipt Date: 20230202
  Transmission Date: 20230418
  Serious: No
  Sender: FDA-Public Use
  Company Number: US-EXELIXIS-CABO-22056813

PATIENT
  Age: 77 Year
  Sex: Male

DRUGS (1)
  1. CABOMETYX [Suspect]
     Active Substance: CABOZANTINIB S-MALATE
     Indication: Renal cancer
     Dosage: 40 MG, QD
     Route: 048

REACTIONS (15)
  - Chest discomfort [Recovered/Resolved]
  - Erythema [Unknown]
  - Retching [Unknown]
  - Genital rash [Unknown]
  - Pain [Recovering/Resolving]
  - Rash [Unknown]
  - Rectal haemorrhage [Recovering/Resolving]
  - Headache [Recovering/Resolving]
  - Diarrhoea [Recovered/Resolved]
  - Fatigue [Recovering/Resolving]
  - Decreased appetite [Not Recovered/Not Resolved]
  - Weight decreased [Not Recovered/Not Resolved]
  - Blood pressure systolic increased [Recovering/Resolving]
  - Cough [Not Recovered/Not Resolved]
  - Constipation [Recovering/Resolving]

NARRATIVE: CASE EVENT DATE: 20220501
